FAERS Safety Report 5218982-7 (Version None)
Quarter: 2007Q1

REPORT INFORMATION
  Report Type: 
  Country: None (occurrence: None)
  Receive Date: 20070125
  Receipt Date: 20070117
  Transmission Date: 20070707
  Serious: Yes (Hospitalization)
  Sender: FDA-Public Use
  Company Number: PHEH2006US14444

PATIENT
  Age: 29 Year
  Sex: Female
  Weight: 64.852 kg

DRUGS (2)
  1. METHERGINE [Suspect]
     Indication: POSTPARTUM HAEMORRHAGE
     Dosage: 0.2 MG, ONCE/SINGLE
     Route: 030
     Dates: start: 20061107
  2. CYTOTEC [Concomitant]
     Dosage: 800 MCG X 1
     Route: 054
     Dates: start: 20061107

REACTIONS (7)
  - BODY TEMPERATURE INCREASED [None]
  - CHILLS [None]
  - COMPLICATION OF DELIVERY [None]
  - CYANOSIS [None]
  - DYSPNOEA [None]
  - LIVEDO RETICULARIS [None]
  - TACHYCARDIA [None]
